FAERS Safety Report 9203597 (Version 1)
Quarter: 2013Q2

REPORT INFORMATION
  Report Type: Spontaneous
  Country: BR (occurrence: BR)
  Receive Date: 20130402
  Receipt Date: 20130402
  Transmission Date: 20140414
  Serious: Yes (Hospitalization, Other)
  Sender: FDA-Public Use
  Company Number: PHHY2013BR023088

PATIENT
  Age: 84 Year
  Sex: Female

DRUGS (14)
  1. FORASEQ [Suspect]
     Indication: BRONCHITIS
     Dosage: 1 DF, BID
  2. FORASEQ [Suspect]
     Dosage: 2 DF, UNK
     Dates: start: 2008
  3. FORASEQ [Suspect]
     Dosage: 2 DF, (1 DAY AGO)
  4. METFORMIN [Concomitant]
     Indication: DIABETES MELLITUS
     Dosage: 2 CAPSULES,DAILY
  5. VERAPAMIL [Concomitant]
     Indication: ARRHYTHMIA
     Dosage: 1 TABLET,EVERY 12 HOURS
  6. LOSARTAN [Concomitant]
     Indication: HYPERTENSION
     Dosage: 1 TABLET,EVERY 12 HOURS
     Route: 048
  7. FOLIC ACID [Concomitant]
     Indication: ANAEMIA
     Dosage: 1 TABLET DAILY
     Route: 048
  8. ADIL [Concomitant]
     Indication: VITAMIN E DEFICIENCY
     Dosage: 10 DROPS,DAILY
     Route: 048
  9. FUROSEMIDE [Concomitant]
     Indication: LUNG DISORDER
     Dosage: 1 TABLET,BID
     Route: 048
  10. OMEPRAZOLE [Concomitant]
     Indication: ABDOMINAL DISCOMFORT
     Dosage: 1 TABLET,DAILY
     Route: 048
  11. ACETYLSALICYLIC ACID [Concomitant]
     Indication: COAGULOPATHY
     Dosage: 1 TABLET,EVERY 12 HOURS
     Route: 048
  12. SUSTRATE [Concomitant]
     Indication: CARDIOMEGALY
     Dosage: 1 TABLET,EVERY 12 HOURS
     Route: 048
  13. AMIODARONE [Concomitant]
     Indication: ARRHYTHMIA
     Dosage: 1 DF,  (IN MORNING AND AT NIGHT)
     Dates: start: 201302
  14. MONTELUKAST SODIUM [Concomitant]
     Indication: ASTHMA
     Dosage: 1 DF, DAILY
     Route: 048
     Dates: start: 20130312

REACTIONS (9)
  - Asthma [Recovered/Resolved]
  - Cough [Recovering/Resolving]
  - Anaemia [Not Recovered/Not Resolved]
  - Cardiomegaly [Unknown]
  - Chest pain [Recovered/Resolved]
  - Malaise [Unknown]
  - Influenza [Recovered/Resolved]
  - Dysstasia [Recovered/Resolved]
  - Tremor [Not Recovered/Not Resolved]
